FAERS Safety Report 6191619-9 (Version None)
Quarter: 2009Q2

REPORT INFORMATION
  Report Type: 
  Country: None (occurrence: None)
  Receive Date: 20090515
  Receipt Date: 20090507
  Transmission Date: 20091009
  Serious: Yes (Death, Other)
  Sender: FDA-Public Use
  Company Number: PHHY2009JP17506

PATIENT
  Age: 64 Year
  Sex: Male

DRUGS (4)
  1. ZOLEDRONIC ACID [Suspect]
     Indication: MUSCULOSKELETAL DISORDER
     Dosage: 4 MG
  2. METHOTREXATE [Concomitant]
     Dosage: 100 MGLM2
     Route: 042
  3. FLUOROURACIL [Concomitant]
     Dosage: 600 MG/M2
     Route: 042
  4. PACLITAXEL [Concomitant]

REACTIONS (6)
  - ANOREXIA [None]
  - BACK PAIN [None]
  - DEATH [None]
  - DISSEMINATED INTRAVASCULAR COAGULATION [None]
  - FATIGUE [None]
  - HYPOCALCAEMIA [None]
